FAERS Safety Report 6367138-3 (Version None)
Quarter: 2009Q3

REPORT INFORMATION
  Report Type: 
  Country: None (occurrence: None)
  Receive Date: 20090921
  Receipt Date: 20090911
  Transmission Date: 20100115
  Serious: Yes (Hospitalization)
  Sender: FDA-Public Use
  Company Number: IT-ABBOTT-09P-083-0590044-00

PATIENT
  Sex: Male

DRUGS (1)
  1. KLACID [Suspect]
     Indication: PHARYNGITIS
     Dosage: 1000MG TOTAL
     Route: 048
     Dates: start: 20090802, end: 20090803

REACTIONS (4)
  - DYSPNOEA [None]
  - HYPERTENSION [None]
  - LARYNGEAL OEDEMA [None]
  - PALATAL OEDEMA [None]
